FAERS Safety Report 10706774 (Version 1)
Quarter: 2015Q1

REPORT INFORMATION
  Report Type: Spontaneous
  Country: US (occurrence: US)
  Receive Date: 20150113
  Receipt Date: 20150113
  Transmission Date: 20150721
  Serious: Yes (Other)
  Sender: FDA-Public Use
  Company Number: US-PFIZER INC-2015010587

PATIENT
  Age: 37 Year
  Sex: Female
  Weight: 69.84 kg

DRUGS (3)
  1. CORTEF [Suspect]
     Active Substance: HYDROCORTISONE
     Indication: ADDISON^S DISEASE
     Dosage: AT 20MG IN MORNING (2 TABLET) AND 10MG IN THE EVENING
     Route: 048
     Dates: start: 199805
  2. CORTEF [Suspect]
     Active Substance: HYDROCORTISONE
     Dosage: UNK
     Route: 048
  3. CORTEF [Suspect]
     Active Substance: HYDROCORTISONE
     Dosage: AT 20MG IN MORNING (2 TABLET) AND 10MG IN THE EVENING
     Route: 048

REACTIONS (2)
  - Uterine cancer [Unknown]
  - Neoplasm malignant [Unknown]

NARRATIVE: CASE EVENT DATE: 2000
